FAERS Safety Report 25790738 (Version 1)
Quarter: 2025Q3

REPORT INFORMATION
  Report Type: Spontaneous
  Country: JP (occurrence: JP)
  Receive Date: 20250911
  Receipt Date: 20250911
  Transmission Date: 20251021
  Serious: Yes (Other)
  Sender: DAIICHI
  Company Number: JP-DSJP-DS-2025-163777-JP

PATIENT
  Age: 4 Decade

DRUGS (3)
  1. EDOXABAN TOSYLATE [Suspect]
     Active Substance: EDOXABAN TOSYLATE
     Indication: Deep vein thrombosis
     Dosage: 60 MG, QD
     Route: 048
  2. ALECTINIB HYDROCHLORIDE [Concomitant]
     Active Substance: ALECTINIB HYDROCHLORIDE
     Indication: Non-small cell lung cancer
     Route: 065
  3. LORLATINIB [Concomitant]
     Active Substance: LORLATINIB
     Indication: Non-small cell lung cancer
     Route: 065

REACTIONS (2)
  - Metastasis [Unknown]
  - Metastases to liver [Unknown]
